FAERS Safety Report 8338444-8 (Version None)
Quarter: 2012Q2

REPORT INFORMATION
  Report Type: 
  Country: None (occurrence: None)
  Receive Date: 20120504
  Receipt Date: 20120502
  Transmission Date: 20120825
  Serious: Yes (Other)
  Sender: FDA-Public Use
  Company Number: CA-ABBOTT-12P-028-0932104-00

PATIENT
  Sex: Female
  Weight: 73.548 kg

DRUGS (2)
  1. HUMIRA [Suspect]
     Indication: CROHN'S DISEASE
     Route: 058
     Dates: start: 20071130
  2. PREGVITE [Concomitant]
     Indication: PREGNANCY
     Route: 048

REACTIONS (1)
  - ABORTION SPONTANEOUS [None]
